FAERS Safety Report 7118841-9 (Version None)
Quarter: 2010Q4

REPORT INFORMATION
  Report Type: 
  Country: None (occurrence: None)
  Receive Date: 20101027
  Receipt Date: 20100607
  Transmission Date: 20110411
  Serious: Yes (Hospitalization, Other)
  Sender: FDA-Public Use
  Company Number: US-WYE-H15555510

PATIENT
  Age: 77 Year
  Sex: Female
  Weight: 59.02 kg

DRUGS (19)
  1. PREMARIN [Suspect]
     Indication: VULVOVAGINAL PRURITUS
     Dosage: ^PUT ON AN INCH THREE NIGHTS A WEEK AT BEDTIME^,
     Dates: start: 20050101
  2. ADVAIR DISKUS 100/50 [Concomitant]
  3. SPIRIVA (TIOTROPIUIM BROMIDE) [Concomitant]
  4. WARFARIN SODIUM [Concomitant]
  5. FOSAMAX [Concomitant]
  6. TRIAMTERENE (TRIAMTERENE) [Concomitant]
  7. EFFEXOR [Concomitant]
  8. ARTIFICIAL TEARS (ARTIFICIAL [Concomitant]
  9. CALCIUM WITH VITAMIN D (CALCIUM PHOSPHATE/CALCIUM SODIUM LACTATE/ERGOC [Concomitant]
  10. MIRALAX [Concomitant]
  11. NASAL SALINE (SODIUM CHLORIDE) [Concomitant]
  12. PRAVACHOL [Concomitant]
  13. DILTIAZEM [Concomitant]
  14. AMBIEN [Concomitant]
  15. ALPRAZOLAM [Concomitant]
  16. LOVAZA [Concomitant]
  17. FEXOFENADINE HCL [Concomitant]
  18. COMBIVENT [Concomitant]
  19. FOLIC ACID [Concomitant]

REACTIONS (2)
  - CEREBROVASCULAR ACCIDENT [None]
  - DRUG EFFECT DECREASED [None]
